FAERS Safety Report 9915360 (Version 1)
Quarter: 2014Q1

REPORT INFORMATION
  Report Type: Report from Study
  Country: CZ (occurrence: CZ)
  Receive Date: 20140221
  Receipt Date: 20140221
  Transmission Date: 20141002
  Serious: Yes (Other)
  Sender: FDA-Public Use
  Company Number: CZ-ROCHE-1307321

PATIENT
  Age: 24 Year
  Sex: Male

DRUGS (5)
  1. XELODA [Suspect]
     Indication: COLORECTAL CANCER
     Dosage: PARALLEL WITH OXALIPLATIN
     Route: 065
     Dates: start: 20120305
  2. XELODA [Suspect]
     Dosage: PARALLEL WITH AVASTIN
     Route: 065
     Dates: start: 20120607
  3. XELODA [Suspect]
     Route: 065
     Dates: start: 20081212
  4. AVASTIN [Suspect]
     Indication: COLORECTAL CANCER
     Dosage: PARALLEL WITH CAPECITABIN
     Route: 065
     Dates: start: 20120607
  5. OXALIPLATIN [Suspect]
     Indication: COLORECTAL CANCER
     Dosage: PARALLEL WITH CAPECITABIN
     Route: 065
     Dates: start: 20120305

REACTIONS (3)
  - Conjunctivitis [Unknown]
  - Asthenia [Unknown]
  - Paraesthesia [Unknown]
